FAERS Safety Report 8276582-9 (Version None)
Quarter: 2012Q2

REPORT INFORMATION
  Report Type: 
  Country: None (occurrence: None)
  Receive Date: 20120412
  Receipt Date: 20120404
  Transmission Date: 20120825
  Serious: Yes (Other)
  Sender: FDA-Public Use
  Company Number: US-BAYER-2012-033397

PATIENT
  Sex: Female

DRUGS (1)
  1. MIRENA [Suspect]
     Indication: GENITAL HAEMORRHAGE
     Dosage: 20 MCG/24HR, CONT
     Dates: start: 20111129

REACTIONS (2)
  - DEVICE DISLOCATION [None]
  - GENITAL HAEMORRHAGE [None]
